FAERS Safety Report 4641573-3 (Version None)
Quarter: 2005Q2

REPORT INFORMATION
  Report Type: 
  Country: None (occurrence: None)
  Receive Date: 20050420
  Receipt Date: 20050330
  Transmission Date: 20051028
  Serious: Yes (Other)
  Sender: FDA-Public Use
  Company Number: US_0411107616

PATIENT
  Age: 64 Year
  Sex: Male
  Weight: 73 kg

DRUGS (15)
  1. ZYPREXA [Suspect]
     Dosage: 25 MG DAY
     Dates: start: 20011015
  2. SEROQUEL [Concomitant]
  3. SYMBYAX [Concomitant]
  4. APO-DIVALPROEX (VALPROATE SEMISODIUM) [Concomitant]
  5. GLUCOPHAGE [Concomitant]
  6. GLYSET (MIGLITOL) [Concomitant]
  7. STARLIX [Concomitant]
  8. ACTOS [Concomitant]
  9. AVANDIA [Concomitant]
  10. ZOLOFT [Concomitant]
  11. SONATA [Concomitant]
  12. MIRALAX [Concomitant]
  13. TRICOR [Concomitant]
  14. ALTACE (RAMIPRIL DURA) [Concomitant]
  15. PLETAL [Concomitant]

REACTIONS (4)
  - BLOOD CREATINE PHOSPHOKINASE INCREASED [None]
  - DIABETES MELLITUS [None]
  - LOSS OF CONSCIOUSNESS [None]
  - RESPIRATORY ARREST [None]
